FAERS Safety Report 22089543 (Version 1)
Quarter: 2023Q1

REPORT INFORMATION
  Report Type: Spontaneous
  Country: CN (occurrence: CN)
  Receive Date: 20230313
  Receipt Date: 20230313
  Transmission Date: 20230418
  Serious: Yes (Disabling)
  Sender: FDA-Public Use
  Company Number: CN-009507513-2303CHN003554

PATIENT
  Age: 79 Year
  Sex: Male
  Weight: 75 kg

DRUGS (1)
  1. JANUVIA [Suspect]
     Active Substance: SITAGLIPTIN PHOSPHATE
     Indication: Diabetes mellitus
     Dosage: 1 TABLET, ONCE DAILY
     Route: 048
     Dates: start: 20201001, end: 20201001

REACTIONS (3)
  - Hypoaesthesia oral [Recovered/Resolved]
  - Dysarthria [Recovered/Resolved]
  - Computerised tomogram head abnormal [Unknown]

NARRATIVE: CASE EVENT DATE: 20201001
